FAERS Safety Report 4762509-0 (Version None)
Quarter: 2005Q3

REPORT INFORMATION
  Report Type: 
  Country: None (occurrence: None)
  Receive Date: 20050902
  Receipt Date: 20050406
  Transmission Date: 20060218
  Serious: Yes (Other)
  Sender: FDA-Public Use
  Company Number: 2005S1002009

PATIENT
  Age: 58 Year
  Sex: Male
  Weight: 127.0072 kg

DRUGS (7)
  1. FENTANYL [Suspect]
     Indication: PAIN
     Dosage: 50 MCG/HR; Q3D; TDER
     Route: 062
     Dates: start: 20050301, end: 20050404
  2. OXYCODONE HCL [Concomitant]
  3. GABAPENTIN [Concomitant]
  4. TIAGABINE HYDROCHLORIDE [Concomitant]
  5. DILTIAZEM [Concomitant]
  6. IREBESARTAN [Concomitant]
  7. CELECOXIB [Concomitant]

REACTIONS (2)
  - DRUG EFFECT DECREASED [None]
  - DYSPNOEA [None]
